FAERS Safety Report 22069435 (Version 1)
Quarter: 2023Q1

REPORT INFORMATION
  Report Type: Spontaneous
  Country: US (occurrence: US)
  Receive Date: 20230307
  Receipt Date: 20230307
  Transmission Date: 20230417
  Serious: No
  Sender: FDA-Public Use
  Company Number: US-AMNEAL PHARMACEUTICALS-2022-AMRX-00671

PATIENT
  Age: 78 Year
  Sex: Male

DRUGS (1)
  1. RYTARY [Suspect]
     Active Substance: CARBIDOPA\LEVODOPA
     Indication: Product used for unknown indication
     Dosage: 4 CAPSULES, 3X/DAY
     Route: 048

REACTIONS (3)
  - Drug effect less than expected [Unknown]
  - Crying [Unknown]
  - Tremor [Unknown]

NARRATIVE: CASE EVENT DATE: 20220304
